FAERS Safety Report 21179071 (Version 1)
Quarter: 2022Q3

REPORT INFORMATION
  Report Type: Spontaneous
  Country: GB (occurrence: GB)
  Receive Date: 20220805
  Receipt Date: 20220805
  Transmission Date: 20221027
  Serious: Yes (Other)
  Sender: FDA-Public Use
  Company Number: GB-AMGEN-GBRSP2022130419

PATIENT
  Age: 43 Year
  Sex: Male
  Weight: 108 kg

DRUGS (1)
  1. ADALIMUMAB [Suspect]
     Active Substance: ADALIMUMAB
     Indication: Psoriasis
     Dosage: 40 MILLIGRAM, Q2WK
     Route: 065
     Dates: start: 20190730, end: 20201006

REACTIONS (1)
  - Testicular seminoma (pure) [Recovered/Resolved with Sequelae]

NARRATIVE: CASE EVENT DATE: 20210306
